FAERS Safety Report 8415621-9 (Version None)
Quarter: 2012Q2

REPORT INFORMATION
  Report Type: 
  Country: None (occurrence: None)
  Receive Date: 20120606
  Receipt Date: 20120529
  Transmission Date: 20120825
  Serious: Yes (Hospitalization, Other)
  Sender: FDA-Public Use
  Company Number: CH-BRISTOL-MYERS SQUIBB COMPANY-16586323

PATIENT
  Age: 57 Year
  Sex: Female

DRUGS (10)
  1. ABILIFY [Suspect]
     Indication: BIPOLAR DISORDER
     Dosage: 1 DF : 30-45MG,SINCE MONTHS UNTIL 20FEB12;DOSE REDUCED ON 21FEB12-06MAR12,15MG
     Route: 048
     Dates: start: 20120217, end: 20120306
  2. ESCITALOPRAM [Suspect]
     Dosage: 1 DF: 10/20MG
     Route: 048
  3. FUROSEMIDE [Suspect]
     Dosage: 1DF : 40/20MG,DOSE REDUCED ON 02MAR12
     Route: 048
  4. GLICLAZIDE [Concomitant]
     Route: 048
  5. PAROXETINE HYDROCHLORIDE [Concomitant]
     Dosage: 1 DF : 20/10MG
     Route: 048
  6. RISPERDAL [Suspect]
     Dosage: 1 DF : 1/4/6 MG
     Route: 048
  7. METOPROLOL TARTRATE AND HYDROCHLOROTHIAZIDE [Suspect]
     Route: 048
  8. ASPIRIN [Concomitant]
     Route: 048
  9. DIPIPERON [Concomitant]
     Dosage: 1 DF : 60/40MG
     Route: 048
  10. ALLOPURINOL [Concomitant]
     Route: 048

REACTIONS (3)
  - HYPOKALAEMIA [None]
  - ELECTROCARDIOGRAM QT PROLONGED [None]
  - OVERDOSE [None]
